FAERS Safety Report 11463952 (Version 1)
Quarter: 2015Q3

REPORT INFORMATION
  Report Type: Spontaneous
  Country: US (occurrence: US)
  Receive Date: 20150831
  Receipt Date: 20150831
  Transmission Date: 20151125
  Serious: No
  Sender: FDA-Public Use
  Company Number: US-ELI_LILLY_AND_COMPANY-US201105007293

PATIENT
  Age: 78 Year
  Sex: Male

DRUGS (9)
  1. SYNTHROID [Concomitant]
     Active Substance: LEVOTHYROXINE SODIUM
  2. ADVAIR HFA [Concomitant]
     Active Substance: FLUTICASONE PROPIONATE\SALMETEROL XINAFOATE
  3. NAPROXEN. [Concomitant]
     Active Substance: NAPROXEN
  4. NEURONTIN [Concomitant]
     Active Substance: GABAPENTIN
  5. NEXIUM                                  /USA/ [Concomitant]
  6. HYDROCHLOROTHIAZIDE. [Concomitant]
     Active Substance: HYDROCHLOROTHIAZIDE
  7. PREDNISONE. [Concomitant]
     Active Substance: PREDNISONE
  8. CYMBALTA [Suspect]
     Active Substance: DULOXETINE HYDROCHLORIDE
     Indication: DEPRESSION
     Dosage: 30 MG, QD
     Dates: start: 201104
  9. PROCARDIA XL [Concomitant]
     Active Substance: NIFEDIPINE

REACTIONS (5)
  - Dyspnoea [Unknown]
  - Weight decreased [Unknown]
  - Dysphonia [Unknown]
  - Tinnitus [Not Recovered/Not Resolved]
  - Rhinorrhoea [Unknown]
